FAERS Safety Report 18091598 (Version 1)
Quarter: 2020Q3

REPORT INFORMATION
  Report Type: Spontaneous
  Country: US (occurrence: US)
  Receive Date: 20200729
  Receipt Date: 20200729
  Transmission Date: 20201103
  Serious: Yes (Disabling)
  Sender: FDA-Public Use
  Company Number: None

PATIENT
  Age: 34 Year
  Sex: Male

DRUGS (2)
  1. MULTI CENTRUM [Concomitant]
  2. FINASTERIDE (1 MG/DAY) [Suspect]
     Active Substance: FINASTERIDE
     Indication: ANDROGENETIC ALOPECIA
     Dates: start: 20200526, end: 20200726

REACTIONS (2)
  - Erectile dysfunction [None]
  - Gynaecomastia [None]

NARRATIVE: CASE EVENT DATE: 20200726
